FAERS Safety Report 22586516 (Version 1)
Quarter: 2023Q2

REPORT INFORMATION
  Report Type: Spontaneous
  Country: US (occurrence: US)
  Receive Date: 20230611
  Receipt Date: 20230611
  Transmission Date: 20230722
  Serious: No
  Sender: FDA-Public Use
  Company Number: US-PERRIGO-22US013564

PATIENT
  Age: 83 Year
  Sex: Male
  Weight: 73.469 kg

DRUGS (4)
  1. DICLOFENAC SODIUM [Suspect]
     Active Substance: DICLOFENAC SODIUM
     Indication: Arthralgia
     Dosage: 3.56 G, TID
     Route: 061
     Dates: start: 20221001
  2. ELIQUIS [Concomitant]
     Active Substance: APIXABAN
     Indication: Myocardial injury
     Dosage: UNK
     Route: 065
     Dates: start: 2012
  3. LISINOPRIL [Concomitant]
     Active Substance: LISINOPRIL
     Indication: Myocardial injury
     Dosage: UNK
     Route: 061
     Dates: start: 2012
  4. TYLENOL [Concomitant]
     Active Substance: ACETAMINOPHEN
     Indication: Pain
     Dosage: UNK
     Route: 065
     Dates: start: 2012

REACTIONS (1)
  - Product administered at inappropriate site [Unknown]

NARRATIVE: CASE EVENT DATE: 20221001
